FAERS Safety Report 19610008 (Version 7)
Quarter: 2022Q4

REPORT INFORMATION
  Report Type: Report from Study
  Country: AT (occurrence: AT)
  Receive Date: 20210726
  Receipt Date: 20221206
  Transmission Date: 20230113
  Serious: Yes (Life-Threatening, Hospitalization, Other)
  Sender: FDA-Public Use
  Company Number: AT-PFM-2021-06664

PATIENT
  Age: 79 Year
  Sex: Male
  Weight: 92 kg

DRUGS (26)
  1. ENCORAFENIB [Suspect]
     Active Substance: ENCORAFENIB
     Indication: Colorectal cancer
     Dosage: 300 MG/DAY
     Route: 048
     Dates: start: 20210615, end: 20210620
  2. CETUXIMAB [Suspect]
     Active Substance: CETUXIMAB
     Indication: Colorectal cancer
     Dosage: 400 MG/M2, WEEKLY
     Route: 042
     Dates: start: 20210615, end: 20210615
  3. PASPERTIN [Concomitant]
     Indication: Prophylaxis
     Dosage: 10 MG PRN (AS NEEDED)
     Route: 048
     Dates: start: 20201014
  4. METAMIZOLE [Concomitant]
     Active Substance: METAMIZOLE
     Indication: Prophylaxis
     Dosage: 30 DROP PRN (AS NEEDED)
     Route: 048
     Dates: start: 20201014, end: 20210706
  5. METAMIZOLE [Concomitant]
     Active Substance: METAMIZOLE
     Dosage: 1 G THREE TIMES A DAY
     Route: 042
     Dates: start: 20210717, end: 20210723
  6. GLANDOMED [Concomitant]
     Indication: Prophylaxis
     Dosage: 20 ML, PRN (AS NEEDED)
     Route: 048
     Dates: start: 20201015
  7. ZOFRAN [Concomitant]
     Active Substance: ONDANSETRON HYDROCHLORIDE
     Indication: Prophylaxis
     Dosage: 8 MG, PRN (AS NEEDED)
     Route: 048
     Dates: start: 20201018
  8. LAXOGOL [Concomitant]
     Indication: Constipation
     Dosage: 1 BAD PRN (AS NEEDED)
     Route: 048
     Dates: start: 20201028
  9. FENOTEROL HYDROBROMIDE\IPRATROPIUM BROMIDE [Concomitant]
     Active Substance: FENOTEROL HYDROBROMIDE\IPRATROPIUM BROMIDE
     Indication: Dyspnoea
     Dosage: PR2 PUFF PRN (AS NEEDED)
     Route: 048
     Dates: start: 20201106
  10. EDOXABAN TOSYLATE [Concomitant]
     Active Substance: EDOXABAN TOSYLATE
     Indication: Pulmonary embolism
     Dosage: 60 MG DAILY
     Route: 048
     Dates: start: 20201121, end: 20210706
  11. EDOXABAN TOSYLATE [Concomitant]
     Active Substance: EDOXABAN TOSYLATE
     Dosage: 60 MG DAILY
     Route: 048
     Dates: start: 20210722
  12. ANTIFLAT [Concomitant]
     Indication: Constipation
     Dosage: 1 UNKNOWN DOSE PRN (AS NEEDED)
     Route: 048
     Dates: start: 20201201
  13. AMLODIPINE BESYLATE [Concomitant]
     Active Substance: AMLODIPINE BESYLATE
     Indication: Hypertension
     Dosage: 10 MG PRN (AS NEEDED)
     Route: 048
     Dates: start: 20201203
  14. MUNDISAL [Concomitant]
     Indication: Prophylaxis
     Dosage: 1 APPLICATION THREE TIMES A DAY
     Route: 061
     Dates: start: 20210114
  15. TAMSULOSIN [Concomitant]
     Active Substance: TAMSULOSIN
     Indication: Pollakiuria
     Dosage: 0.4 MG DAILY
     Route: 048
     Dates: start: 20210217, end: 20210705
  16. TAMSULOSIN [Concomitant]
     Active Substance: TAMSULOSIN
     Dosage: 0.4 MG, DAILY
     Route: 048
     Dates: start: 20210718, end: 20210718
  17. OLODATEROL HYDROCHLORIDE\TIOTROPIUM BROMIDE MONOHYDRATE [Concomitant]
     Active Substance: OLODATEROL HYDROCHLORIDE\TIOTROPIUM BROMIDE MONOHYDRATE
     Indication: Chronic obstructive pulmonary disease
     Dosage: 2 HUB DAILY
     Route: 055
     Dates: start: 20210505
  18. DRONABINOL [Concomitant]
     Active Substance: DRONABINOL
     Indication: Prophylaxis
     Dosage: 5 DROP THREE TIMES A DAY
     Route: 048
     Dates: start: 20210527
  19. RAMIPRIL [Concomitant]
     Active Substance: RAMIPRIL
     Indication: Hypertension
     Dosage: 5 MG DAILY
     Route: 048
     Dates: start: 20210614, end: 20210705
  20. RAMIPRIL [Concomitant]
     Active Substance: RAMIPRIL
     Dosage: 5 MG DAILY
     Route: 048
     Dates: start: 20210718
  21. PANTOPRAZOLE SODIUM [Concomitant]
     Active Substance: PANTOPRAZOLE SODIUM
     Indication: Prophylaxis
     Dosage: 40 MG DAILY
     Route: 048
     Dates: start: 20210705, end: 20210713
  22. PANTOPRAZOLE SODIUM [Concomitant]
     Active Substance: PANTOPRAZOLE SODIUM
     Dosage: 40 MG DAILY
     Route: 042
     Dates: start: 20210717, end: 20210718
  23. MIDODRINE HYDROCHLORIDE [Concomitant]
     Active Substance: MIDODRINE HYDROCHLORIDE
     Indication: Pollakiuria
     Dosage: 5 DROPS PRN
     Route: 048
     Dates: start: 20210707, end: 20210718
  24. MAGNESIUM CARBONATE\MAGNESIUM OXIDE [Concomitant]
     Active Substance: MAGNESIUM CARBONATE\MAGNESIUM OXIDE
     Indication: Prophylaxis
     Dosage: 1 APPLICATION, PRN
     Route: 048
     Dates: start: 20210712
  25. KCL [Concomitant]
     Active Substance: POTASSIUM CHLORIDE
     Indication: Prophylaxis
     Dosage: 600 MG, DAILY
     Route: 048
     Dates: start: 20210712, end: 20210712
  26. LASIX [Concomitant]
     Active Substance: FUROSEMIDE
     Indication: Prophylaxis
     Dosage: 40 MG, PRN
     Route: 042
     Dates: start: 20210712, end: 20210719

REACTIONS (9)
  - Ileus [Recovered/Resolved]
  - Infection [Not Recovered/Not Resolved]
  - Influenza like illness [Not Recovered/Not Resolved]
  - General physical health deterioration [Recovered/Resolved with Sequelae]
  - Aspiration [Recovering/Resolving]
  - C-reactive protein increased [Not Recovered/Not Resolved]
  - Pyrexia [Not Recovered/Not Resolved]
  - Constipation [Unknown]
  - Fall [Recovered/Resolved]

NARRATIVE: CASE EVENT DATE: 20210621
